FAERS Safety Report 7366035-4 (Version None)
Quarter: 2011Q1

REPORT INFORMATION
  Report Type: 
  Country: None (occurrence: None)
  Receive Date: 20110322
  Receipt Date: 20110308
  Transmission Date: 20110831
  Serious: Yes (Hospitalization)
  Sender: FDA-Public Use
  Company Number: US-JNJFOC-20070503121

PATIENT
  Sex: Female
  Weight: 48.6 kg

DRUGS (5)
  1. INFLIXIMAB [Suspect]
     Indication: PRODUCT USED FOR UNKNOWN INDICATION
     Route: 042
  2. INFLIXIMAB [Suspect]
     Dosage: TOTAL 5 DOSES
     Route: 042
  3. METRONIDAZOLE [Concomitant]
  4. CIPROFLOXACIN [Concomitant]
  5. MESALAMINE [Concomitant]
     Route: 048

REACTIONS (2)
  - POST PROCEDURAL CELLULITIS [None]
  - COLOSTOMY CLOSURE [None]
